FAERS Safety Report 7266455-2 (Version None)
Quarter: 2011Q1

REPORT INFORMATION
  Report Type: 
  Country: None (occurrence: None)
  Receive Date: 20110131
  Receipt Date: 20110117
  Transmission Date: 20110831
  Serious: Yes (Other)
  Sender: FDA-Public Use
  Company Number: ES-CELGENEUS-144-21880-11011519

PATIENT
  Age: 41 Year
  Sex: Female

DRUGS (4)
  1. REVLIMID [Suspect]
     Indication: MULTIPLE MYELOMA
     Route: 048
     Dates: start: 20100601, end: 20101201
  2. ADRIAMYCIN PFS [Concomitant]
     Route: 065
     Dates: start: 20100601, end: 20101201
  3. VINCRISTINE [Concomitant]
     Route: 065
     Dates: start: 20100601, end: 20101201
  4. DEXAMETHASONE [Concomitant]
     Route: 065
     Dates: start: 20100601, end: 20101201

REACTIONS (1)
  - CARDIAC DISORDER [None]
